FAERS Safety Report 7279602-3 (Version None)
Quarter: 2011Q1

REPORT INFORMATION
  Report Type: 
  Country: None (occurrence: None)
  Receive Date: 20110203
  Receipt Date: 20110203
  Transmission Date: 20110831
  Serious: Yes (Hospitalization)
  Sender: FDA-Public Use
  Company Number: None

PATIENT
  Sex: Female
  Weight: 57.6068 kg

DRUGS (3)
  1. TAXOL [Suspect]
     Indication: BREAST CANCER
     Dosage: 70MG/M2
     Dates: start: 20101111, end: 20110118
  2. CISPLATIN [Suspect]
     Indication: BREAST CANCER
     Dosage: 20MG/M2
     Dates: start: 20101111, end: 20110113
  3. RAD001 [Suspect]
     Indication: BREAST CANCER
     Dosage: 5MG
     Dates: start: 20101111, end: 20110118

REACTIONS (2)
  - CHOLECYSTITIS [None]
  - CHOLELITHIASIS [None]
